FAERS Safety Report 8133163-5 (Version None)
Quarter: 2012Q1

REPORT INFORMATION
  Report Type: 
  Country: None (occurrence: None)
  Receive Date: 20120213
  Receipt Date: 20120208
  Transmission Date: 20120608
  Serious: Yes (Other)
  Sender: FDA-Public Use
  Company Number: PHEH2011US06018

PATIENT
  Sex: Female

DRUGS (1)
  1. AREDIA [Suspect]
     Indication: NEOPLASM MALIGNANT
     Dosage: 90 MG, QMO
     Route: 042

REACTIONS (15)
  - SEBORRHOEIC DERMATITIS [None]
  - INTERVERTEBRAL DISC DEGENERATION [None]
  - CERVICAL SPINAL STENOSIS [None]
  - POLYDIPSIA [None]
  - HEPATIC ENZYME INCREASED [None]
  - PULMONARY CONGESTION [None]
  - PATHOLOGICAL FRACTURE [None]
  - CARDIOMEGALY [None]
  - PERICARDIAL EFFUSION [None]
  - FEBRILE NEUTROPENIA [None]
  - CARDIAC TAMPONADE [None]
  - INTERVERTEBRAL DISC PROTRUSION [None]
  - SPINAL OSTEOARTHRITIS [None]
  - HEPATIC STEATOSIS [None]
  - CARDIAC FAILURE CONGESTIVE [None]
